FAERS Safety Report 24309363 (Version 2)
Quarter: 2024Q3

REPORT INFORMATION
  Report Type: Spontaneous
  Country: US (occurrence: US)
  Receive Date: 20240911
  Receipt Date: 20240926
  Transmission Date: 20241016
  Serious: Yes (Death)
  Sender: TEVA
  Company Number: US-TEVA-VS-3240333

PATIENT
  Age: 26 Year
  Sex: Male

DRUGS (2)
  1. ETOPOSIDE [Suspect]
     Active Substance: ETOPOSIDE
     Indication: Brain sarcoma
     Route: 037
  2. PAZOPANIB [Suspect]
     Active Substance: PAZOPANIB
     Indication: Brain sarcoma
     Route: 048

REACTIONS (1)
  - Drug ineffective [Fatal]
